FAERS Safety Report 8984407 (Version 1)
Quarter: 2012Q4

REPORT INFORMATION
  Report Type: 
  Country: ES (occurrence: None)
  Receive Date: 20121217
  Receipt Date: 20121217
  Transmission Date: 20130627
  Serious: Yes (Other)
  Sender: FDA-Public Use
  Company Number: ES-1195639

PATIENT
  Age: 36 Year
  Sex: Female

DRUGS (3)
  1. TIMOLOL MALEATE [Suspect]
     Indication: GLAUCOMA
     Dosage: (Ophthalmic)
(  to unknown)
     Route: 047
  2. LATANOPROST (LATANOPROST) (NONE) [Suspect]
     Indication: GLAUCOMA
     Dosage: (Ophthalmic)
(  to unknown)
     Route: 047
  3. ACETAZOLAMIDE [Suspect]
     Indication: GLAUCOMA
     Dosage: ( )
(  to unknown)

REACTIONS (4)
  - Blindness unilateral [None]
  - Drug ineffective [None]
  - Pregnancy [None]
  - Exposure during pregnancy [None]
